FAERS Safety Report 17775002 (Version 2)
Quarter: 2023Q2

REPORT INFORMATION
  Report Type: Report from Study
  Country: US (occurrence: US)
  Receive Date: 20200513
  Receipt Date: 20230601
  Transmission Date: 20230721
  Serious: Yes (Other)
  Sender: FDA-Public Use
  Company Number: US-ACADIA PHARMACEUTICALS INC.-ACA-2020-PIM-000347

PATIENT
  Sex: Female

DRUGS (4)
  1. NUPLAZID [Suspect]
     Active Substance: PIMAVANSERIN TARTRATE
     Indication: Parkinson^s disease
     Dosage: 10 MILLIGRAM, QD
     Route: 048
  2. NUPLAZID [Suspect]
     Active Substance: PIMAVANSERIN TARTRATE
     Indication: Hallucination
  3. NUPLAZID [Suspect]
     Active Substance: PIMAVANSERIN TARTRATE
     Indication: Delusion
  4. NUPLAZID [Suspect]
     Active Substance: PIMAVANSERIN TARTRATE
     Indication: Parkinson^s disease
     Dosage: 34 MILLIGRAM
     Route: 065

REACTIONS (13)
  - Cardiac failure congestive [Not Recovered/Not Resolved]
  - Tachyphrenia [Not Recovered/Not Resolved]
  - Dysphonia [Not Recovered/Not Resolved]
  - Restlessness [Not Recovered/Not Resolved]
  - Weight increased [Not Recovered/Not Resolved]
  - Hyperphagia [Not Recovered/Not Resolved]
  - Asthenia [Not Recovered/Not Resolved]
  - Fatigue [Not Recovered/Not Resolved]
  - Balance disorder [Not Recovered/Not Resolved]
  - Insomnia [Not Recovered/Not Resolved]
  - Depressed mood [Not Recovered/Not Resolved]
  - Paranoia [Not Recovered/Not Resolved]
  - Product dose omission issue [Unknown]
